FAERS Safety Report 21060807 (Version 1)
Quarter: 2022Q3

REPORT INFORMATION
  Report Type: Spontaneous
  Country: FR (occurrence: FR)
  Receive Date: 20220709
  Receipt Date: 20220709
  Transmission Date: 20221026
  Serious: Yes (Other)
  Sender: FDA-Public Use
  Company Number: None

PATIENT
  Age: 44 Year
  Sex: Male
  Weight: 71 kg

DRUGS (1)
  1. DOXORUBICIN [Suspect]
     Active Substance: DOXORUBICIN
     Indication: Sarcoma
     Dosage: DURATION :1 DAY, UNIT DOSE : 57 MG,FREQUENCY TIME :1 TOTAL
     Route: 065
     Dates: start: 20220608, end: 20220609

REACTIONS (2)
  - Extravasation [Recovered/Resolved]
  - Administration site injury [Recovered/Resolved]

NARRATIVE: CASE EVENT DATE: 20220608
